FAERS Safety Report 9459648 (Version 2)
Quarter: 2013Q4

REPORT INFORMATION
  Report Type: Spontaneous
  Country: US (occurrence: US)
  Receive Date: 20130815
  Receipt Date: 20131112
  Transmission Date: 20140711
  Serious: No
  Sender: FDA-Public Use
  Company Number: US-COVIDIEN/TYCO HEALTHCARE/MALLINCKRODT-T201304106

PATIENT
  Age: 54 Year
  Sex: Male
  Weight: 55.78 kg

DRUGS (3)
  1. FENTANYL TRANSDERMAL SYSTEM [Suspect]
     Indication: PAIN
     Dosage: UNK
     Route: 062
     Dates: start: 201308
  2. FENTANYL [Concomitant]
     Indication: PRODUCT USED FOR UNKNOWN INDICATION
     Dosage: 75 UG/HR, ONE PATCH EVERY 48 HOURS
     Dates: start: 2011, end: 201308
  3. FLEXERIL                           /00428402/ [Concomitant]
     Indication: INSOMNIA
     Dosage: 10 MG, ONE TABLET ON DAY ONE OF FTS USE
     Route: 048

REACTIONS (3)
  - Activities of daily living impaired [Not Recovered/Not Resolved]
  - Insomnia [Not Recovered/Not Resolved]
  - Drug effect decreased [Not Recovered/Not Resolved]
